FAERS Safety Report 8697150 (Version 6)
Quarter: 2014Q3

REPORT INFORMATION
  Report Type: Spontaneous
  Country: US (occurrence: US)
  Receive Date: 20120801
  Receipt Date: 20140822
  Transmission Date: 20150326
  Serious: Yes (Hospitalization)
  Sender: FDA-Public Use
  Company Number: US-009507513-1207USA008754

PATIENT
  Sex: Female
  Weight: 72.56 kg

DRUGS (1)
  1. NUVARING [Suspect]
     Active Substance: ETHINYL ESTRADIOL\ETONOGESTREL
     Indication: CONTRACEPTION
     Dosage: UNK
     Route: 067
     Dates: start: 200908, end: 201005

REACTIONS (8)
  - Menorrhagia [Unknown]
  - Transfusion [Unknown]
  - Vitamin B12 deficiency [Recovering/Resolving]
  - Deep vein thrombosis [Not Recovered/Not Resolved]
  - Respiratory tract infection [Unknown]
  - Asthma [Unknown]
  - Pernicious anaemia [Unknown]
  - Epistaxis [Recovered/Resolved]

NARRATIVE: CASE EVENT DATE: 201005
